FAERS Safety Report 26106165 (Version 1)
Quarter: 2025Q4

REPORT INFORMATION
  Report Type: Spontaneous
  Country: CN (occurrence: CN)
  Receive Date: 20251201
  Receipt Date: 20251201
  Transmission Date: 20260117
  Serious: Yes (Other)
  Sender: ROCHE
  Company Number: CN-ROCHE-10000446414

PATIENT
  Age: 48 Year
  Sex: Female

DRUGS (1)
  1. INAVOLISIB [Suspect]
     Active Substance: INAVOLISIB
     Indication: Breast cancer
     Route: 048
     Dates: start: 20251104, end: 20251120

REACTIONS (1)
  - Anaphylactoid reaction [Recovering/Resolving]

NARRATIVE: CASE EVENT DATE: 20251119
